FAERS Safety Report 6741192-9 (Version None)
Quarter: 2010Q2

REPORT INFORMATION
  Report Type: 
  Country: None (occurrence: None)
  Receive Date: 20100526
  Receipt Date: 20100511
  Transmission Date: 20101027
  Serious: Yes (Hospitalization, Other)
  Sender: FDA-Public Use
  Company Number: CA-ELI_LILLY_AND_COMPANY-CA_030605997

PATIENT
  Sex: Male
  Weight: 32.1 kg

DRUGS (4)
  1. SOMATROPIN [Suspect]
     Indication: GROWTH HORMONE DEFICIENCY
     Dosage: 1.2 MG, UNK
     Route: 058
     Dates: start: 20020415, end: 20050503
  2. SYNTHROID [Concomitant]
     Indication: HYPOTHYROIDISM
     Dosage: UNK, UNKNOWN
     Dates: start: 19990304
  3. DILANTIN [Concomitant]
     Indication: CONVULSION
     Dosage: 100 MG, 2/D
     Route: 048
     Dates: start: 19990815
  4. ASPIRIN [Concomitant]
     Indication: PROPHYLAXIS
     Dosage: UNK, UNKNOWN
     Dates: start: 20040602

REACTIONS (5)
  - ISCHAEMIC STROKE [None]
  - MASTOIDITIS [None]
  - MENINGIOMA [None]
  - STATUS EPILEPTICUS [None]
  - VASCULITIS [None]
